FAERS Safety Report 5569841-1 (Version None)
Quarter: 2007Q4

REPORT INFORMATION
  Report Type: 
  Country: None (occurrence: None)
  Receive Date: 20071220
  Receipt Date: 20070808
  Transmission Date: 20080405
  Serious: No
  Sender: FDA-Public Use
  Company Number: US-ABBOTT-07P-163-0377241-00

PATIENT
  Sex: Male
  Weight: 117.9 kg

DRUGS (14)
  1. OMNICEF [Suspect]
     Indication: PHARYNGITIS
     Route: 048
     Dates: start: 20070731, end: 20070805
  2. OMNICEF [Suspect]
     Indication: EAR INFECTION
  3. LANTIS [Concomitant]
     Indication: TYPE 2 DIABETES MELLITUS
     Route: 050
  4. WARFARIN SODIUM [Concomitant]
     Indication: ATRIAL FIBRILLATION
  5. TERAZOSIN HYDROCHLORIDE [Concomitant]
     Indication: PROSTATOMEGALY
  6. JENUVIA [Concomitant]
     Indication: DIABETES MELLITUS
  7. ACTOS PLUS [Concomitant]
     Indication: DIABETES MELLITUS
  8. MONTELUKAST SODIUM [Concomitant]
     Indication: DYSPNOEA
  9. METOPROLOL SUCCINATE [Concomitant]
     Indication: HYPERTENSION
  10. LISINOPRIL [Concomitant]
     Indication: BLOOD PRESSURE
  11. FUROSEMIDE [Concomitant]
     Indication: DIURETIC THERAPY
  12. ESOMEPRAZOLE MAGNESIUM [Concomitant]
     Indication: GASTROOESOPHAGEAL REFLUX DISEASE
  13. INEGY [Concomitant]
     Indication: BLOOD CHOLESTEROL
  14. LEVOTHYROXINE SODIUM [Concomitant]
     Indication: THYROID DISORDER

REACTIONS (4)
  - CONFUSIONAL STATE [None]
  - HALLUCINATION [None]
  - HICCUPS [None]
  - HYPOTENSION [None]
